FAERS Safety Report 6154018-1 (Version None)
Quarter: 2009Q2

REPORT INFORMATION
  Report Type: 
  Country: None (occurrence: None)
  Receive Date: 20090414
  Receipt Date: 20090407
  Transmission Date: 20091009
  Serious: Yes (Hospitalization)
  Sender: FDA-Public Use
  Company Number: PHHY2009FR13211

PATIENT
  Sex: Female

DRUGS (2)
  1. ZOMETA [Suspect]
     Indication: OSTEOSIS
     Dosage: 4 MG, QMO
     Route: 042
     Dates: start: 20031030, end: 20080905
  2. CORTANCYL [Concomitant]
     Indication: OSTEOSIS
     Dosage: UNK
     Dates: start: 20060101

REACTIONS (5)
  - C-REACTIVE PROTEIN INCREASED [None]
  - OSTEOLYSIS [None]
  - OSTEONECROSIS [None]
  - PAIN IN JAW [None]
  - SUPERINFECTION [None]
